FAERS Safety Report 5089643-2 (Version None)
Quarter: 2006Q3

REPORT INFORMATION
  Report Type: 
  Country: None (occurrence: None)
  Receive Date: 20060822
  Receipt Date: 20060807
  Transmission Date: 20061208
  Serious: Yes (Hospitalization)
  Sender: FDA-Public Use
  Company Number: US200608001598

PATIENT
  Age: 84 Year
  Sex: Male

DRUGS (3)
  1. HUMALOG [Suspect]
     Indication: DIABETES MELLITUS
     Dosage: AS NEEDED
  2. HUMALOG LISPRO (LISPRO LIPRO) PEN, DISPOSABLE [Suspect]
     Indication: DIABETES MELLITUS
     Dosage: 4/D
  3. HUMALOG PEN [Concomitant]

REACTIONS (4)
  - LOWER LIMB FRACTURE [None]
  - OSTEOPOROSIS [None]
  - PHARMACEUTICAL PRODUCT COMPLAINT [None]
  - VISUAL ACUITY REDUCED [None]
